FAERS Safety Report 5281986-2 (Version None)
Quarter: 2007Q1

REPORT INFORMATION
  Report Type: 
  Country: None (occurrence: None)
  Receive Date: 20070330
  Receipt Date: 20070326
  Transmission Date: 20070707
  Serious: Yes (Hospitalization, Disabling)
  Sender: FDA-Public Use
  Company Number: US-BOEHRINGER INGELHEIM PHARMACEUTICALS, INC.-2007-BP-04207BP

PATIENT
  Sex: Male

DRUGS (1)
  1. FLOMAX [Suspect]
     Indication: PROSTATE EXAMINATION ABNORMAL
     Route: 048
     Dates: start: 20070302, end: 20070302

REACTIONS (5)
  - INTERVERTEBRAL DISC INJURY [None]
  - LOSS OF CONSCIOUSNESS [None]
  - MONOPARESIS [None]
  - SPINAL FRACTURE [None]
  - TENDON INJURY [None]
